FAERS Safety Report 8262695-4 (Version None)
Quarter: 2012Q2

REPORT INFORMATION
  Report Type: 
  Country: None (occurrence: None)
  Receive Date: 20120405
  Receipt Date: 20120327
  Transmission Date: 20120825
  Serious: Yes (Hospitalization, Other)
  Sender: FDA-Public Use
  Company Number: PHHY2012DE016509

PATIENT
  Sex: Female
  Weight: 66 kg

DRUGS (18)
  1. RASILEZ [Suspect]
     Indication: HYPERTENSION
     Dosage: 150 MG/DAY
     Route: 048
     Dates: start: 20081016, end: 20110301
  2. RAMIPRIL [Suspect]
     Dosage: 10 MG, DAILY
     Route: 048
     Dates: start: 20050101
  3. ACE INHIBITOR NOS [Concomitant]
  4. BETA BLOCKING AGENTS [Concomitant]
  5. DIURETICS [Concomitant]
  6. CYNT [Concomitant]
     Dosage: 0.4 MG, DAILY
     Route: 048
     Dates: start: 20111120
  7. INSIDON [Suspect]
     Dosage: 100 MG, DAILY
     Route: 048
  8. AMLODIPINE [Suspect]
     Indication: BLOOD PRESSURE INCREASED
     Dosage: 10 MG, DAILY
     Route: 048
  9. LEVOTHYROXINE SODIUM [Suspect]
     Dosage: 200 UG, DAILY
     Route: 048
     Dates: start: 20060101
  10. CALCIUM CHANNEL BLOCKERS [Concomitant]
  11. TORSEMIDE [Suspect]
     Dosage: 200 MG, DAILY
     Route: 048
     Dates: start: 20050101
  12. PANTOPRAZOLE [Suspect]
     Dosage: 20 MG, DAILY
     Route: 048
     Dates: start: 20040101
  13. INSULIN [Concomitant]
  14. NITRATES [Concomitant]
  15. ANTIHYPERTENSIVE DRUGS [Concomitant]
  16. PLATELET AGGREGATION INHIBITORS [Concomitant]
  17. TEVACIDOL [Concomitant]
     Dosage: 0.25 UG, DAILY
     Route: 048
     Dates: start: 20120101
  18. METOPROLOL SUCCINATE [Concomitant]
     Dosage: 190 MG, DAILY
     Route: 048
     Dates: start: 20120101

REACTIONS (2)
  - CEREBROVASCULAR ACCIDENT [None]
  - BLOOD PRESSURE SYSTOLIC INCREASED [None]
